FAERS Safety Report 9372154 (Version 1)
Quarter: 2013Q2

REPORT INFORMATION
  Report Type: Spontaneous
  Country: GB (occurrence: GB)
  Receive Date: 20130627
  Receipt Date: 20130627
  Transmission Date: 20140414
  Serious: Yes (Hospitalization)
  Sender: FDA-Public Use
  Company Number: GB-PFIZER INC-2013186127

PATIENT
  Age: 76 Year
  Sex: Female

DRUGS (5)
  1. RAMIPRIL [Suspect]
     Indication: HYPERTENSION
     Dosage: 5 MG, DAILY
     Route: 048
     Dates: start: 20130405, end: 20130524
  2. BISOPROLOL [Concomitant]
     Indication: HYPERTENSION
     Dosage: 2.5 MG, DAILY
     Route: 048
     Dates: start: 20130525
  3. PROMETHAZINE [Concomitant]
     Dosage: 10 MG, DAILY
     Route: 048
  4. LEVOTHYROXINE [Concomitant]
     Dosage: 1 DF, DAILY
     Route: 048
  5. ACETYLSALICYLIC ACID [Concomitant]
     Dosage: 75 MG, DAILY
     Route: 048

REACTIONS (5)
  - Tremor [Recovered/Resolved]
  - Palpitations [Recovered/Resolved]
  - Hypertension [Recovered/Resolved]
  - Paraesthesia [Recovered/Resolved]
  - Flushing [Recovered/Resolved]
